FAERS Safety Report 9025879 (Version 1)
Quarter: 2013Q1

REPORT INFORMATION
  Report Type: Spontaneous
  Country: BE (occurrence: BE)
  Receive Date: 20130122
  Receipt Date: 20130122
  Transmission Date: 20140127
  Serious: Yes (Other)
  Sender: FDA-Public Use
  Company Number: BE-ROCHE-1181434

PATIENT
  Age: 68 Year
  Sex: Female
  Weight: 52.5 kg

DRUGS (9)
  1. XELODA [Suspect]
     Indication: BREAST CANCER METASTATIC
     Dosage: FOR 14 DAYS
     Route: 065
     Dates: start: 201208
  2. XELODA [Suspect]
     Dosage: 4 CYCLES
     Route: 065
  3. HERCEPTIN [Suspect]
     Indication: BREAST CANCER METASTATIC
     Route: 065
     Dates: start: 200803
  4. TAXOL [Suspect]
     Indication: BREAST CANCER METASTATIC
     Route: 065
     Dates: start: 200803, end: 200807
  5. LAPATINIB [Suspect]
     Indication: BREAST CANCER METASTATIC
     Dosage: FOR 35 DAYS
     Route: 065
     Dates: start: 200808
  6. LAPATINIB [Suspect]
     Route: 065
  7. FLUOROURACIL [Concomitant]
     Indication: BREAST CANCER METASTATIC
     Dosage: 6 CYCLES
     Route: 065
     Dates: start: 200703
  8. EPIRUBICIN [Concomitant]
     Indication: BREAST CANCER METASTATIC
     Dosage: 6 CYCLES
     Route: 065
     Dates: start: 200703
  9. CYCLOPHOSPHAMIDE [Concomitant]
     Indication: BREAST CANCER METASTATIC
     Route: 065
     Dates: start: 200703

REACTIONS (2)
  - Malignant neoplasm progression [Not Recovered/Not Resolved]
  - Malignant neoplasm progression [Not Recovered/Not Resolved]
